FAERS Safety Report 4387754-8 (Version None)
Quarter: 2004Q2

REPORT INFORMATION
  Report Type: 
  Country: None (occurrence: None)
  Receive Date: 20040630
  Receipt Date: 20040428
  Transmission Date: 20050107
  Serious: Yes (Life-Threatening, Hospitalization)
  Sender: FDA-Public Use
  Company Number: FR-ROCHE-366111

PATIENT
  Age: 32 Year
  Sex: Male

DRUGS (4)
  1. PEG-INTERFERON A-2A (RO 25-8310) [Suspect]
     Indication: HEPATITIS C
     Dosage: FORM REPORTED AS INJECTABLE SOLUTION.
     Route: 058
     Dates: start: 20030801, end: 20040401
  2. REBETOL [Suspect]
     Indication: HEPATITIS C
     Route: 048
  3. TRIATEC [Concomitant]
     Indication: DRUG USE FOR UNKNOWN INDICATION
     Route: 065
  4. ASPIRIN [Concomitant]
     Indication: DRUG USE FOR UNKNOWN INDICATION
     Dosage: DOSING REGIMEN REPORTED AS 1 G X 3
     Route: 065

REACTIONS (6)
  - CARDIAC FAILURE [None]
  - CARDIOMYOPATHY [None]
  - CONGESTIVE CARDIOMYOPATHY [None]
  - PERICARDIAL EFFUSION [None]
  - PERICARDITIS [None]
  - RESPIRATORY FAILURE [None]
